FAERS Safety Report 19058515 (Version 4)
Quarter: 2021Q4

REPORT INFORMATION
  Report Type: Spontaneous
  Country: PL (occurrence: PL)
  Receive Date: 20210325
  Receipt Date: 20211019
  Transmission Date: 20220303
  Serious: Yes (Hospitalization, Other)
  Sender: FDA-Public Use
  Company Number: None

PATIENT
  Age: 70 Year
  Sex: Male

DRUGS (10)
  1. BISOPROLOL FUMARATE [Interacting]
     Active Substance: BISOPROLOL FUMARATE
     Dosage: 2.5 MG, 1X PER DAY(2.5 MG, 1X PER DAY.FOR A MONTH )
  2. RAMIPRIL [Interacting]
     Active Substance: RAMIPRIL
     Dosage: 2.5 MG, 1X PER DAY(2.5 MG, 1X PER DAY.FOR A MONTH)
  3. CLOPIDOGREL BISULFATE [Interacting]
     Active Substance: CLOPIDOGREL BISULFATE
     Dosage: 75 MG, PER DAY
  4. CLOPIDOGREL BISULFATE [Interacting]
     Active Substance: CLOPIDOGREL BISULFATE
     Dosage: 600 MILLIGRAM
  5. ROSUVASTATIN [Interacting]
     Active Substance: ROSUVASTATIN
     Dosage: 40 MG, 1X PER DAY(40 MG, 1X PER DAY.FOR A MONTH )(FILM-COATED TABLET  )
     Route: 048
  6. PANTOPRAZOLE [Interacting]
     Active Substance: PANTOPRAZOLE
     Dosage: 20 MG, 1X PER DAY(20 MG, 1X PER DAY.FOR A MONTH   )
  7. ASPIRIN [Interacting]
     Active Substance: ASPIRIN
     Dosage: 75 MG, 1X PER DAY(75 MG, 1X PER DAY.FOR A MONTH )
  8. TICAGRELOR [Interacting]
     Active Substance: TICAGRELOR
     Dosage: 90 MG, 2X PER DAY(90 MG, 2X PER DAY.FOR A MONTH )
     Route: 048
  9. LACIDIPINE [Interacting]
     Active Substance: LACIDIPINE
     Indication: Product used for unknown indication
     Dosage: UNK
  10. CEFTAZIDIME [Concomitant]
     Active Substance: CEFTAZIDIME
     Dosage: UNK

REACTIONS (10)
  - Rhabdomyolysis [Recovering/Resolving]
  - Drug interaction [Recovering/Resolving]
  - Clostridium difficile infection [Recovered/Resolved]
  - Gastrointestinal haemorrhage [Recovering/Resolving]
  - Melaena [Unknown]
  - Anuria [Unknown]
  - Blood urea increased [Recovering/Resolving]
  - Acute kidney injury [Recovering/Resolving]
  - Diarrhoea [Recovered/Resolved]
  - Procalcitonin increased [Unknown]
